FAERS Safety Report 6533081-X (Version None)
Quarter: 2010Q1

REPORT INFORMATION
  Report Type: 
  Country: None (occurrence: None)
  Receive Date: 20100111
  Receipt Date: 20100104
  Transmission Date: 20100710
  Serious: Yes (Death, Hospitalization)
  Sender: FDA-Public Use
  Company Number: ES-ELI_LILLY_AND_COMPANY-ES201001000261

PATIENT
  Age: 66 Year
  Sex: Female

DRUGS (5)
  1. FORTEO [Suspect]
     Indication: OSTEOPOROSIS
     Dosage: 20 UG, UNKNOWN
     Route: 058
     Dates: start: 20080501
  2. FORTEO [Suspect]
     Dosage: UNK, UNKNOWN
     Route: 058
  3. DACORTIN [Concomitant]
  4. CELEBREX [Concomitant]
  5. CORTICOSTEROIDS [Concomitant]

REACTIONS (2)
  - HOSPITALISATION [None]
  - PNEUMONIA [None]
